FAERS Safety Report 9162821 (Version 1)
Quarter: 2013Q1

REPORT INFORMATION
  Report Type: Spontaneous
  Country: KR (occurrence: None)
  Receive Date: 20130225
  Receipt Date: 20130225
  Transmission Date: 20140127
  Serious: Yes (Other)
  Sender: FDA-Public Use
  Company Number: B0868758A

PATIENT
  Age: 47 Year
  Sex: Male

DRUGS (3)
  1. ZOFRAN [Suspect]
     Indication: PROCEDURAL NAUSEA
     Route: 042
  2. METOCLOPRAMIDE [Suspect]
     Indication: PROCEDURAL NAUSEA
     Route: 042
  3. FENTANYL [Concomitant]

REACTIONS (4)
  - Gaze palsy [None]
  - Muscle rigidity [None]
  - Opisthotonus [None]
  - Extrapyramidal disorder [None]
